FAERS Safety Report 6828818-6 (Version None)
Quarter: 2010Q3

REPORT INFORMATION
  Report Type: 
  Country: None (occurrence: None)
  Receive Date: 20100706
  Receipt Date: 20100621
  Transmission Date: 20110219
  Serious: Yes (Hospitalization)
  Sender: FDA-Public Use
  Company Number: 8047504

PATIENT
  Sex: Female
  Weight: 50.5 kg

DRUGS (10)
  1. CERTOLIZUMAB PEGOL [Suspect]
     Indication: RHEUMATOID ARTHRITIS
     Dosage: SUBCUTANEOUS
     Route: 058
     Dates: start: 20090223, end: 20090518
  2. PREDNISOLONE [Suspect]
     Indication: RHEUMATOID ARTHRITIS
     Dosage: 10 MG ORAL), 18 MG ORAL
     Route: 048
     Dates: start: 20061101, end: 20090101
  3. PREDNISOLONE [Suspect]
     Indication: RHEUMATOID ARTHRITIS
     Dosage: 10 MG ORAL), 18 MG ORAL
     Route: 048
     Dates: start: 20090101
  4. RHEUMATREX [Suspect]
     Indication: RHEUMATOID ARTHRITIS
     Dosage: 8 MG 1X/WEEK ORAL
     Route: 048
     Dates: start: 20081118, end: 20090527
  5. FOLIC ACID [Concomitant]
  6. ISONIAZID [Concomitant]
  7. PYRIDOXAL [Concomitant]
  8. ALENDRONATE SODIUM [Suspect]
  9. TEPRENONE [Suspect]
  10. LOXOPROFEN SODIUM [Suspect]

REACTIONS (12)
  - ARTHRALGIA [None]
  - DEHYDRATION [None]
  - FIBULA FRACTURE [None]
  - HEPATIC FUNCTION ABNORMAL [None]
  - NEPHRITIS [None]
  - PSEUDOMONAS INFECTION [None]
  - PYELONEPHRITIS [None]
  - PYOMYOSITIS [None]
  - RENAL IMPAIRMENT [None]
  - STAPHYLOCOCCAL INFECTION [None]
  - UROSEPSIS [None]
  - VOMITING [None]
